FAERS Safety Report 4873409-X (Version None)
Quarter: 2005Q4

REPORT INFORMATION
  Report Type: 
  Country: None (occurrence: None)
  Receive Date: 20051201
  Receipt Date: 20050816
  Transmission Date: 20060501
  Serious: No
  Sender: FDA-Public Use
  Company Number: 2005PV001312

PATIENT
  Age: 62 Year
  Sex: Female
  Weight: 74.8435 kg

DRUGS (16)
  1. BYETTA [Suspect]
     Indication: DIABETES MELLITUS NON-INSULIN-DEPENDENT
     Dosage: 5 MCG; BID; SC
     Route: 058
     Dates: start: 20050727, end: 20050816
  2. GLUCOTROL [Concomitant]
  3. PLAVIX [Concomitant]
  4. TOPROL [Concomitant]
  5. AVAPROL [Concomitant]
  6. LIPITOR [Concomitant]
  7. ZETIA [Concomitant]
  8. NEURONTIN [Concomitant]
  9. CYMBALTA [Concomitant]
  10. EVISTA [Concomitant]
  11. CELEBREX [Concomitant]
  12. ACTONEL [Concomitant]
  13. ASPIRIN [Concomitant]
  14. CHROMIUM PICOLANTE [Concomitant]
  15. MULTIVITAMIN [Concomitant]
  16. CHONDROITIN SULFATE/GLUCOSAMINE SULFATE [Concomitant]

REACTIONS (6)
  - DECREASED APPETITE [None]
  - DRY SKIN [None]
  - NAUSEA [None]
  - PRURITUS [None]
  - TINEA INFECTION [None]
  - WEIGHT DECREASED [None]
